FAERS Safety Report 4750150-5 (Version None)
Quarter: 2005Q3

REPORT INFORMATION
  Report Type: 
  Country: None (occurrence: None)
  Receive Date: 20050819
  Receipt Date: 20050804
  Transmission Date: 20060218
  Serious: Yes (Other)
  Sender: FDA-Public Use
  Company Number: SP00482

PATIENT
  Age: 52 Year
  Sex: Male
  Weight: 142.8831 kg

DRUGS (7)
  1. XIFAXAN [Suspect]
     Indication: CROHN'S DISEASE
     Dosage: 400MG/BID ORAL
     Route: 048
     Dates: start: 20050701
  2. VITAMIN K (INJECTION) [Concomitant]
  3. MORPHINE [Concomitant]
  4. GLUCOPHAGE [Concomitant]
  5. FLOMAX [Concomitant]
  6. LASIX [Concomitant]
  7. MEDTHOTREXATE IM [Concomitant]

REACTIONS (3)
  - EPISTAXIS [None]
  - INTERNATIONAL NORMALISED RATIO INCREASED [None]
  - MYALGIA [None]
